FAERS Safety Report 6479540-X (Version None)
Quarter: 2009Q4

REPORT INFORMATION
  Report Type: 
  Country: None (occurrence: None)
  Receive Date: 20091208
  Receipt Date: 20091126
  Transmission Date: 20100525
  Serious: Yes (Hospitalization, Other)
  Sender: FDA-Public Use
  Company Number: GB-ELI_LILLY_AND_COMPANY-GB200906002388

PATIENT
  Sex: Female
  Weight: 123 kg

DRUGS (6)
  1. BYETTA [Suspect]
     Indication: TYPE 2 DIABETES MELLITUS
     Dosage: 5 UG, UNKNOWN
     Route: 058
     Dates: start: 20090323, end: 20090421
  2. METFORMIN HCL [Concomitant]
     Indication: DIABETES MELLITUS
     Dosage: 2.5 G, UNKNOWN
     Route: 048
  3. AMITRIPTYLINE [Concomitant]
     Dosage: 10 MG, UNKNOWN
     Route: 048
  4. GLICLAZIDE [Concomitant]
     Indication: DIABETES MELLITUS
     Dosage: 160 MG, UNKNOWN
     Route: 048
  5. BENDROFLUAZIDE [Concomitant]
     Dosage: 2.5 MG, UNKNOWN
     Route: 048
  6. ENALAPRIL [Concomitant]
     Dosage: 5 MG, UNK
     Route: 048

REACTIONS (2)
  - HEPATIC STEATOSIS [None]
  - PANCREATITIS [None]
